FAERS Safety Report 9000252 (Version 1)
Quarter: 2013Q1

REPORT INFORMATION
  Report Type: Spontaneous
  Country: US (occurrence: None)
  Receive Date: 20130102
  Receipt Date: 20130102
  Transmission Date: 20140127
  Serious: No
  Sender: FDA-Public Use
  Company Number: None

PATIENT
  Age: 56 Year
  Sex: Male
  Weight: 72 kg

DRUGS (1)
  1. DULOXETINE [Suspect]
     Dosage: 60 MG EVERY DAY PO
     Route: 048
     Dates: start: 20120808, end: 20121018

REACTIONS (1)
  - Hyponatraemia [None]
